FAERS Safety Report 21736438 (Version 4)
Quarter: 2023Q2

REPORT INFORMATION
  Report Type: Spontaneous
  Country: CA (occurrence: CA)
  Receive Date: 20221215
  Receipt Date: 20230428
  Transmission Date: 20230721
  Serious: Yes (Hospitalization)
  Sender: FDA-Public Use
  Company Number: CA-BIOVITRUM-2022CA14814

PATIENT
  Age: 56 Year
  Sex: Female

DRUGS (1)
  1. ANAKINRA [Suspect]
     Active Substance: ANAKINRA
     Indication: Haemophagocytic lymphohistiocytosis
     Dosage: 1 EVERY 1 DAYS
     Route: 058

REACTIONS (3)
  - Illness [Unknown]
  - Off label use [Unknown]
  - Product supply issue [Unknown]
